FAERS Safety Report 21878264 (Version 1)
Quarter: 2023Q1

REPORT INFORMATION
  Report Type: Spontaneous
  Country: US (occurrence: US)
  Receive Date: 20230118
  Receipt Date: 20230118
  Transmission Date: 20230418
  Serious: Yes (Death)
  Sender: FDA-Public Use
  Company Number: US-MALLINCKRODT-T202300231

PATIENT
  Age: 42 Year
  Sex: Male

DRUGS (6)
  1. OFIRMEV [Suspect]
     Active Substance: ACETAMINOPHEN
     Indication: Product used for unknown indication
     Dosage: UNK (INGESTION AND PARENTRAL)
     Route: 065
  2. LIRAGLUTIDE [Suspect]
     Active Substance: LIRAGLUTIDE
     Indication: Product used for unknown indication
     Dosage: UNK  (INGESTION AND PARENTRAL)
     Route: 065
  3. LISINOPRIL [Suspect]
     Active Substance: LISINOPRIL
     Indication: Product used for unknown indication
     Dosage: UNK  (INGESTION AND PARENTRAL)
     Route: 065
  4. ACETAMINOPHEN\HYDROCODONE [Suspect]
     Active Substance: ACETAMINOPHEN\HYDROCODONE
     Indication: Product used for unknown indication
     Dosage: UNK (INGESTION AND PARENTRAL)
     Route: 065
  5. INSULIN GLARGINE [Suspect]
     Active Substance: INSULIN GLARGINE
     Indication: Product used for unknown indication
     Dosage: UNK, ER (EXTENDED RELEASE)  (INGESTION AND PARENTRAL)
     Route: 065
  6. ALCOHOL [Suspect]
     Active Substance: ALCOHOL
     Indication: Product used for unknown indication
     Dosage: UNK (BEVERAGE), (INGESTION AND PARENTRAL)
     Route: 065

REACTIONS (1)
  - Suspected suicide [Fatal]
